FAERS Safety Report 4842560-2 (Version None)
Quarter: 2005Q4

REPORT INFORMATION
  Report Type: 
  Country: None (occurrence: None)
  Receive Date: 20051128
  Receipt Date: 20051110
  Transmission Date: 20060501
  Serious: Yes (Other)
  Sender: FDA-Public Use
  Company Number: TRP_0633_2005

PATIENT
  Age: 36 Year
  Sex: Female
  Weight: 78.9259 kg

DRUGS (5)
  1. RIBASPHERE/RIBAVIRI/THREE RIVERS PHARMA/200 MG [Suspect]
     Indication: HEPATITIS C
     Dosage: DF PO
     Route: 048
     Dates: start: 20050827, end: 20050901
  2. PEG-INTRON [Suspect]
     Indication: HEPATITIS C
     Dosage: DF SC
     Route: 058
     Dates: start: 20050827, end: 20050901
  3. HYDROXYZINE HCL [Concomitant]
  4. LEXAPRO [Concomitant]
  5. SYNTHROID [Concomitant]

REACTIONS (5)
  - AUTOIMMUNE HEPATITIS [None]
  - BACK PAIN [None]
  - CONDITION AGGRAVATED [None]
  - MUSCULOSKELETAL CHEST PAIN [None]
  - PELVIC PAIN [None]
